FAERS Safety Report 7892643-8 (Version None)
Quarter: 2011Q4

REPORT INFORMATION
  Report Type: 
  Country: None (occurrence: None)
  Receive Date: 20111102
  Receipt Date: 20111020
  Transmission Date: 20120403
  Serious: Yes (Other)
  Sender: FDA-Public Use
  Company Number: 2011-4269

PATIENT
  Age: 48 Year
  Sex: Female

DRUGS (1)
  1. BOTULINUM TOXIN TYPE A [Suspect]
     Indication: SKIN WRINKLING
     Dosage: (SINGLE CYCLE)
     Dates: start: 20070401, end: 20070401

REACTIONS (4)
  - HERPES ZOSTER [None]
  - PARAESTHESIA [None]
  - HEADACHE [None]
  - EYE SWELLING [None]
